FAERS Safety Report 23750136 (Version 3)
Quarter: 2024Q4

REPORT INFORMATION
  Report Type: Report from Study
  Country: GB (occurrence: GB)
  Receive Date: 20240417
  Receipt Date: 20241025
  Transmission Date: 20250114
  Serious: Yes (Other)
  Sender: NOVARTIS
  Company Number: GB-002147023-NVSC2022GB238545

PATIENT
  Age: 54 Year
  Sex: Female

DRUGS (2)
  1. MAYZENT [Suspect]
     Active Substance: SIPONIMOD
     Indication: Secondary progressive multiple sclerosis
     Dosage: 0.5 MG, ONCE/SINGLE
     Route: 048
     Dates: start: 20221019
  2. MAYZENT [Suspect]
     Active Substance: SIPONIMOD
     Indication: Multiple sclerosis
     Dosage: 2 MG, QD (5-DAY TITRATION PACK TO START)
     Route: 048

REACTIONS (17)
  - Lower respiratory tract infection [Unknown]
  - Fatigue [Recovering/Resolving]
  - Contusion [Unknown]
  - Joint swelling [Unknown]
  - White blood cell count decreased [Unknown]
  - Hot flush [Unknown]
  - Agitation [Unknown]
  - Insomnia [Unknown]
  - Skin ulcer [Not Recovered/Not Resolved]
  - Grip strength decreased [Not Recovered/Not Resolved]
  - Coordination abnormal [Not Recovered/Not Resolved]
  - Asthenia [Not Recovered/Not Resolved]
  - Dizziness [Recovering/Resolving]
  - Blood pressure increased [Unknown]
  - Haemoglobin abnormal [Unknown]
  - Oral candidiasis [Recovering/Resolving]
  - Product supply issue [Unknown]

NARRATIVE: CASE EVENT DATE: 20221019
